FAERS Safety Report 20962946 (Version 2)
Quarter: 2022Q3

REPORT INFORMATION
  Report Type: Report from Study
  Country: IT (occurrence: IT)
  Receive Date: 20220615
  Receipt Date: 20220729
  Transmission Date: 20221027
  Serious: Yes (Other)
  Sender: FDA-Public Use
  Company Number: IT-ELI_LILLY_AND_COMPANY-IT202206002894

PATIENT
  Age: 34 Year
  Sex: Female

DRUGS (5)
  1. EMGALITY [Suspect]
     Active Substance: GALCANEZUMAB-GNLM
     Indication: Migraine without aura
     Dosage: 240 DOSAGE FORM (1 VIAL), MONTHLY (1/M)
     Route: 065
     Dates: start: 20201027
  2. EMGALITY [Suspect]
     Active Substance: GALCANEZUMAB-GNLM
     Dosage: 120 DOSAGE FORM, UNKNOWN
     Route: 065
     Dates: start: 20201127
  3. EMGALITY [Suspect]
     Active Substance: GALCANEZUMAB-GNLM
     Dosage: 1 VIAL, EVERY 45 DAYS
     Route: 065
  4. EMGALITY [Suspect]
     Active Substance: GALCANEZUMAB-GNLM
     Dosage: 1 VIAL, EVERY 60 DAYS
     Route: 065
     Dates: end: 20210604
  5. INDOMETHACIN [Concomitant]
     Active Substance: INDOMETHACIN
     Indication: Migraine
     Dosage: UNK, UNKNOWN
     Route: 065
     Dates: start: 202010, end: 202106

REACTIONS (1)
  - Constipation [Recovered/Resolved]

NARRATIVE: CASE EVENT DATE: 20201201
